FAERS Safety Report 24786596 (Version 1)
Quarter: 2024Q4

REPORT INFORMATION
  Report Type: Spontaneous
  Country: GB (occurrence: GB)
  Receive Date: 20241230
  Receipt Date: 20241230
  Transmission Date: 20250114
  Serious: Yes (Other)
  Sender: DEXCEL
  Company Number: None

PATIENT
  Age: 70 Year
  Sex: Male
  Weight: 100 kg

DRUGS (12)
  1. OMEPRAZOLE [Suspect]
     Active Substance: OMEPRAZOLE
     Dosage: TAKE ONE DAILY
     Route: 048
     Dates: start: 20241118, end: 20241128
  2. AMOXICILLIN\CLAVULANATE POTASSIUM [Concomitant]
     Active Substance: AMOXICILLIN\CLAVULANATE POTASSIUM
     Dosage: TAKE ONE THREE TIMES A DAY
     Dates: start: 20241003, end: 20241010
  3. CYCLIZINECYCLIZINE (Specific Substance SUB4478) [Concomitant]
     Indication: Nausea
     Dosage: PLEASE TAKE ONE EVERY 6-8 HOURS FOR NAUSEA
     Dates: start: 20241104
  4. BETAMETHASONE VALERATE\FUSIDIC ACID [Concomitant]
     Active Substance: BETAMETHASONE VALERATE\FUSIDIC ACID
     Dosage: APPLY TWICE DAILY
     Dates: start: 20241104, end: 20241105
  5. FENBID [Concomitant]
     Indication: Ill-defined disorder
     Dosage: APPLY TO THE AFFECTED AREA(S) THREE TIMES A DAY...
     Dates: start: 20241118
  6. FAMOTIDINEFAMOTIDINE (Specific Substance SUB5582) [Concomitant]
     Dosage: TAKE ONE TABLET ONCE DAILY
     Dates: start: 20241128
  7. PARACETAMOLPARACETAMOL (Specific Substance SUB155) [Concomitant]
     Indication: Pain
     Dosage: TAKE TWO 4 TIMES/DAY WHEN REQUIRED FOR PAIN
     Dates: start: 20241128, end: 20241202
  8. LEVOTHYROXINELEVOTHYROXINE (Specific Substance SUB532) [Concomitant]
     Dosage: 175MCG DAILY
     Dates: start: 20231023
  9. STERIMARNON-MEDICINAL PRODUCT [Concomitant]
     Dosage: AS DIRECTED TO REGULARLY CLEAN NASAL PASSAGE AF...
     Route: 045
     Dates: start: 20231023
  10. ATORVASTATINATORVASTATIN (Specific Substance SUB7358) [Concomitant]
     Dosage: TAKE ONE DAILY FOR CHOLESTEROL
     Dates: start: 20240103
  11. ZOPICLONEZOPICLONE (Specific Substance SUB732) [Concomitant]
     Dosage: TAKE ONE AT NIGHT (CAN HAVE SCRIPT EVERY 3 MONTHS)
     Dates: start: 20240620
  12. POLYETHYLENE GLYCOL 3350\POTASSIUM CHLORIDE\SODIUM BICARBONATE\SODIUM [Concomitant]
     Active Substance: POLYETHYLENE GLYCOL 3350\POTASSIUM CHLORIDE\SODIUM BICARBONATE\SODIUM CHLORIDE
     Dosage: TAKE THE CONTENTS OF ONE SACHET UP TO THREE TIMES A DAY AS NEEDED F...
     Dates: start: 20240703

REACTIONS (1)
  - Joint swelling [Recovering/Resolving]

NARRATIVE: CASE EVENT DATE: 20241128
